FAERS Safety Report 17755927 (Version 1)
Quarter: 2020Q2

REPORT INFORMATION
  Report Type: Spontaneous
  Country: CA (occurrence: CA)
  Receive Date: 20200507
  Receipt Date: 20200507
  Transmission Date: 20200714
  Serious: Yes (Other)
  Sender: FDA-Public Use
  Company Number: CA-ROCHE-2588859

PATIENT
  Age: 75 Year
  Sex: Female

DRUGS (9)
  1. RISEDRONATE SODIUM. [Suspect]
     Active Substance: RISEDRONATE SODIUM
     Indication: PRODUCT USED FOR UNKNOWN INDICATION
     Route: 065
  2. BISOPROLOL [Concomitant]
     Active Substance: BISOPROLOL
     Indication: PRODUCT USED FOR UNKNOWN INDICATION
     Route: 065
  3. HYDROXYCHLOROQUINE [Concomitant]
     Active Substance: HYDROXYCHLOROQUINE
     Indication: PRODUCT USED FOR UNKNOWN INDICATION
     Route: 065
  4. PREDNISONE. [Concomitant]
     Active Substance: PREDNISONE
     Indication: PRODUCT USED FOR UNKNOWN INDICATION
     Route: 065
  5. ACTEMRA [Suspect]
     Active Substance: TOCILIZUMAB
     Indication: RHEUMATOID ARTHRITIS
     Dosage: SUBSEQUENT DOSES ON 464 MG AND 8 MG/KG.
     Route: 042
  6. TOLOXIN [DIGOXIN] [Concomitant]
     Indication: PRODUCT USED FOR UNKNOWN INDICATION
     Route: 065
  7. DEXILANT [Concomitant]
     Active Substance: DEXLANSOPRAZOLE
     Indication: PRODUCT USED FOR UNKNOWN INDICATION
     Route: 065
  8. ALENDRONATE SODIUM. [Concomitant]
     Active Substance: ALENDRONATE SODIUM
  9. METHOTREXATE. [Suspect]
     Active Substance: METHOTREXATE
     Indication: PRODUCT USED FOR UNKNOWN INDICATION
     Route: 065

REACTIONS (24)
  - Asthenia [Not Recovered/Not Resolved]
  - Diarrhoea [Not Recovered/Not Resolved]
  - Peripheral swelling [Unknown]
  - Rhinorrhoea [Unknown]
  - Dysphonia [Not Recovered/Not Resolved]
  - Vomiting [Unknown]
  - Dry throat [Not Recovered/Not Resolved]
  - Nocturia [Unknown]
  - Skin cancer [Unknown]
  - Viral upper respiratory tract infection [Unknown]
  - Arthropathy [Not Recovered/Not Resolved]
  - Urinary incontinence [Unknown]
  - Arthralgia [Not Recovered/Not Resolved]
  - Bladder disorder [Not Recovered/Not Resolved]
  - Weight increased [Unknown]
  - Blood pressure diastolic decreased [Not Recovered/Not Resolved]
  - Pain [Unknown]
  - White blood cell count increased [Unknown]
  - Chromaturia [Not Recovered/Not Resolved]
  - Drug ineffective [Unknown]
  - Liver disorder [Not Recovered/Not Resolved]
  - Nausea [Not Recovered/Not Resolved]
  - Urinary tract disorder [Unknown]
  - Inflammation [Not Recovered/Not Resolved]
